FAERS Safety Report 9845145 (Version 2)
Quarter: 2014Q2

REPORT INFORMATION
  Report Type: Spontaneous
  Country: US (occurrence: None)
  Receive Date: 20140122
  Receipt Date: 20140421
  Transmission Date: 20141212
  Serious: Yes (Other)
  Sender: FDA-Public Use
  Company Number: AEGR000166

PATIENT
  Age: 57 Year
  Sex: Male
  Weight: 119.7 kg

DRUGS (10)
  1. JUXTAPID [Suspect]
     Indication: TYPE IIA HYPERLIPIDAEMIA
     Route: 048
     Dates: start: 201308, end: 20130923
  2. AMLODIPINE (AMLODIPINE MALEATE) [Concomitant]
  3. ANDROGEL (TESTEOSTERONE) [Concomitant]
  4. CRESTOR (ROSUVASTATIN CALCIUM) [Concomitant]
  5. DIOVAN (VALSARTAN) [Concomitant]
  6. LEVOTHYROXINE SODIUM [Concomitant]
  7. METFORMIN (METFORMIN) [Concomitant]
  8. METOPROLOL (METOPROLOL SUCCINATE) [Concomitant]
  9. ZETIA (EZETIMIBE ) [Concomitant]
  10. WELCHOL (COLESEVELAM HYDROCHLORIDE) (625 MILLIGRAM, TABLET) (COLESEVELAM HYDROCHLORIDE) [Concomitant]

REACTIONS (4)
  - Alanine aminotransferase increased [None]
  - Aspartate aminotransferase increased [None]
  - Asthenia [None]
  - Nausea [None]
